FAERS Safety Report 25499333 (Version 2)
Quarter: 2025Q3

REPORT INFORMATION
  Report Type: Spontaneous
  Country: IN (occurrence: IN)
  Receive Date: 20250701
  Receipt Date: 20250714
  Transmission Date: 20251021
  Serious: Yes (Hospitalization, Disabling)
  Sender: PFIZER
  Company Number: IN-PFIZER INC-PV202500077550

PATIENT
  Age: 37 Year
  Sex: Female

DRUGS (1)
  1. CRIZOTINIB [Suspect]
     Active Substance: CRIZOTINIB
     Dosage: 250 MG, 2X/DAY (BD)
     Route: 048

REACTIONS (2)
  - General physical health deterioration [Unknown]
  - Paralysis [Unknown]

NARRATIVE: CASE EVENT DATE: 20250101
